FAERS Safety Report 10672504 (Version 5)
Quarter: 2017Q2

REPORT INFORMATION
  Report Type: Spontaneous
  Country: US (occurrence: US)
  Receive Date: 20141223
  Receipt Date: 20170530
  Transmission Date: 20170829
  Serious: Yes (Disabling, Other)
  Sender: FDA-Public Use
  Company Number: US-009507513-1204USA03748

PATIENT
  Sex: Male
  Weight: 69.84 kg

DRUGS (1)
  1. PROPECIA [Suspect]
     Active Substance: FINASTERIDE
     Indication: ALOPECIA
     Dosage: 1 MG, QD
     Route: 048
     Dates: start: 200503

REACTIONS (24)
  - Cognitive disorder [Unknown]
  - Erectile dysfunction [Not Recovered/Not Resolved]
  - Pollakiuria [Unknown]
  - Depression [Unknown]
  - Ear tube insertion [Unknown]
  - Tonsillectomy [Unknown]
  - Suicidal ideation [Unknown]
  - Ejaculation disorder [Unknown]
  - Ejaculation delayed [Unknown]
  - Libido decreased [Unknown]
  - Upper respiratory tract infection [Unknown]
  - Fatigue [Unknown]
  - Musculoskeletal stiffness [Unknown]
  - Major depression [Unknown]
  - Anxiety [Recovering/Resolving]
  - Ejaculation failure [Unknown]
  - Semen volume decreased [Unknown]
  - Arthroscopy [Unknown]
  - Sinus operation [Unknown]
  - Vertigo [Unknown]
  - Headache [Unknown]
  - Testicular pain [Unknown]
  - Anxiety disorder [Not Recovered/Not Resolved]
  - Sexual dysfunction [Unknown]

NARRATIVE: CASE EVENT DATE: 200503
